FAERS Safety Report 24814712 (Version 2)
Quarter: 2025Q1

REPORT INFORMATION
  Report Type: Spontaneous
  Country: RS (occurrence: RS)
  Receive Date: 20250107
  Receipt Date: 20250127
  Transmission Date: 20250408
  Serious: Yes (Life-Threatening, Hospitalization, Other)
  Sender: BAYER HEALTHCARE PHARMACEUTICALS INC.
  Company Number: RS-BAYER-2025A002182

PATIENT
  Age: 64 Year
  Sex: Male
  Weight: 139 kg

DRUGS (1)
  1. ULTRAVIST [Suspect]
     Active Substance: IOPROMIDE
     Route: 042
     Dates: start: 20241225, end: 20241225

REACTIONS (6)
  - Nausea [Recovering/Resolving]
  - Urinary incontinence [Recovering/Resolving]
  - Altered state of consciousness [Recovering/Resolving]
  - Dyspnoea [Recovering/Resolving]
  - Choking [Recovering/Resolving]
  - Asphyxia [Recovering/Resolving]

NARRATIVE: CASE EVENT DATE: 20241225
